FAERS Safety Report 7802342-6 (Version None)
Quarter: 2011Q4

REPORT INFORMATION
  Report Type: 
  Country: None (occurrence: None)
  Receive Date: 20111005
  Receipt Date: 20110921
  Transmission Date: 20120403
  Serious: Yes (Other)
  Sender: FDA-Public Use
  Company Number: 2011P1009024

PATIENT
  Age: 67 Year
  Sex: Female

DRUGS (7)
  1. PROPAFENONE HCL [Concomitant]
  2. HYDROCHLOROTHIAZIDE [Concomitant]
  3. FUROSEMIDE [Concomitant]
  4. LOSARTAN POTASSIUM [Concomitant]
  5. CITALOPRAM HYDROBROMIDE [Suspect]
     Indication: DEPRESSION
     Dosage: 20 MG;QD
  6. BISOPROLOL FUMARATE [Concomitant]
  7. POTASSIUM [Concomitant]

REACTIONS (1)
  - PARKINSONISM [None]
